FAERS Safety Report 6336575-5 (Version None)
Quarter: 2009Q3

REPORT INFORMATION
  Report Type: 
  Country: None (occurrence: None)
  Receive Date: 20090831
  Receipt Date: 20090831
  Transmission Date: 20100115
  Serious: Yes (Other)
  Sender: FDA-Public Use
  Company Number: None

PATIENT
  Sex: Female
  Weight: 46.2669 kg

DRUGS (2)
  1. PROVIGIL [Suspect]
     Indication: NARCOLEPSY
     Dosage: 1 TAB EVERY MORNING PO
     Route: 048
     Dates: start: 20090515, end: 20090615
  2. PROVIGIL [Suspect]
     Indication: NARCOLEPSY
     Dosage: 1 TAB EVERY MORNING PO
     Route: 048
     Dates: start: 20090620, end: 20090825

REACTIONS (2)
  - DRUG INEFFECTIVE [None]
  - NAUSEA [None]
